FAERS Safety Report 6518135-6 (Version None)
Quarter: 2009Q4

REPORT INFORMATION
  Report Type: 
  Country: None (occurrence: None)
  Receive Date: 20091218
  Receipt Date: 20091204
  Transmission Date: 20100525
  Serious: Yes (Other)
  Sender: FDA-Public Use
  Company Number: 1000010775

PATIENT
  Age: 44 Year
  Sex: Female

DRUGS (2)
  1. ESCITALOPRAM [Suspect]
     Indication: GENERALISED ANXIETY DISORDER
     Dosage: 10 MG (10 MG, 1 IN  1 D); 10 MG 910 MG, 1 IN  1D
     Dates: start: 20090223, end: 20090501
  2. ESCITALOPRAM [Suspect]
     Indication: GENERALISED ANXIETY DISORDER
     Dosage: 10 MG (10 MG, 1 IN  1 D); 10 MG 910 MG, 1 IN  1D
     Dates: start: 20090501

REACTIONS (5)
  - DRUG WITHDRAWAL SYNDROME [None]
  - DYSPEPSIA [None]
  - INAPPROPRIATE SCHEDULE OF DRUG ADMINISTRATION [None]
  - IRRITABILITY [None]
  - TREATMENT NONCOMPLIANCE [None]
